FAERS Safety Report 9457699 (Version 2)
Quarter: 2013Q4

REPORT INFORMATION
  Report Type: Spontaneous
  Country: IT (occurrence: IT)
  Receive Date: 20130814
  Receipt Date: 20131002
  Transmission Date: 20140711
  Serious: Yes (Hospitalization)
  Sender: FDA-Public Use
  Company Number: IT-ROCHE-1260835

PATIENT
  Age: 94 Year
  Sex: Female

DRUGS (10)
  1. VALIUM [Suspect]
     Indication: PRODUCT USED FOR UNKNOWN INDICATION
     Dosage: ORAL DROPS 5MG/ML
     Route: 048
     Dates: start: 20130801, end: 20130805
  2. TAVOR (ITALY) [Suspect]
     Indication: INSOMNIA
     Dosage: TABLET 2,5MG
     Route: 048
     Dates: start: 20130801, end: 20130805
  3. METFORMIN [Concomitant]
     Route: 048
  4. ALDACTONE (ITALY) [Concomitant]
     Route: 048
  5. CARDIRENE [Concomitant]
     Dosage: POWDER FOR ORAL SOLUTION
     Route: 048
  6. LANOXIN [Concomitant]
     Route: 048
  7. MADOPAR [Concomitant]
     Dosage: 200+50 MG TABLET
     Route: 048
  8. LYRICA [Concomitant]
     Route: 048
  9. EFEXOR [Concomitant]
     Dosage: PROLONGED RELEASE HARD CAPSULES
     Route: 048
  10. MIRAPEXIN [Concomitant]
     Route: 048

REACTIONS (4)
  - Bradykinesia [Recovering/Resolving]
  - Dysarthria [Recovering/Resolving]
  - Sopor [Recovering/Resolving]
  - Bradyphrenia [Recovering/Resolving]
